FAERS Safety Report 6279630-0 (Version None)
Quarter: 2009Q3

REPORT INFORMATION
  Report Type: 
  Country: None (occurrence: None)
  Receive Date: 20090723
  Receipt Date: 20090710
  Transmission Date: 20100115
  Serious: Yes (Other)
  Sender: FDA-Public Use
  Company Number: B0584997A

PATIENT
  Age: 80 Year
  Sex: Male

DRUGS (9)
  1. ARTIST [Suspect]
     Indication: DRUG USE FOR UNKNOWN INDICATION
     Route: 065
  2. WARFARIN SODIUM [Suspect]
     Indication: DRUG USE FOR UNKNOWN INDICATION
     Route: 065
  3. OLMETEC [Concomitant]
     Route: 065
  4. MEVALOTIN [Concomitant]
     Route: 065
  5. ESANBUTOL [Concomitant]
     Route: 065
  6. ASTOMIN [Concomitant]
     Route: 065
  7. AMLODIPINE [Concomitant]
     Route: 065
  8. KLARICID [Concomitant]
     Route: 065
  9. GARLIC [Concomitant]
     Route: 065

REACTIONS (2)
  - HYPOTENSION [None]
  - POTENTIATING DRUG INTERACTION [None]
